FAERS Safety Report 8820416 (Version 1)
Quarter: 2012Q4

REPORT INFORMATION
  Report Type: 
  Country: US (occurrence: US)
  Receive Date: 20121002
  Receipt Date: 20121002
  Transmission Date: 20130627
  Serious: Yes (Other)
  Sender: FDA-Public Use
  Company Number: US-ACCORD-014734

PATIENT
  Age: 10 Year
  Sex: Male

DRUGS (4)
  1. MYCOPHENOLATE MOFETIL [Suspect]
     Indication: RENAL TRANSPLANT
  2. TACROLIMUS [Concomitant]
     Indication: RENAL TRANSPLANT
  3. ALBUTEROL [Concomitant]
  4. MONTELUKAST [Concomitant]

REACTIONS (6)
  - Molluscum contagiosum [Recovered/Resolved]
  - Bladder disorder [None]
  - Deformity [None]
  - Complications of transplanted kidney [None]
  - Hydronephrosis [None]
  - Drug level fluctuating [None]
